FAERS Safety Report 7986958-2 (Version None)
Quarter: 2011Q4

REPORT INFORMATION
  Report Type: 
  Country: None (occurrence: None)
  Receive Date: 20111216
  Receipt Date: 20110915
  Transmission Date: 20120403
  Serious: Yes (Hospitalization)
  Sender: FDA-Public Use
  Company Number: US-BRISTOL-MYERS SQUIBB COMPANY-16063232

PATIENT
  Age: 59 Year
  Sex: Female
  Weight: 77 kg

DRUGS (3)
  1. SEROQUEL [Concomitant]
  2. ARICEPT [Concomitant]
  3. ABILIFY [Suspect]
     Route: 048
     Dates: start: 20080101

REACTIONS (3)
  - DEPRESSION [None]
  - GAIT DISTURBANCE [None]
  - NIGHTMARE [None]
